FAERS Safety Report 12460602 (Version 1)
Quarter: 2016Q2

REPORT INFORMATION
  Report Type: Report from Study
  Country: IT (occurrence: IT)
  Receive Date: 20160613
  Receipt Date: 20160613
  Transmission Date: 20160815
  Serious: Yes (Other)
  Sender: FDA-Public Use
  Company Number: IT-PFIZER INC-2016005837

PATIENT
  Age: 74 Year
  Sex: Female
  Weight: 78 kg

DRUGS (23)
  1. PROPOFOL. [Suspect]
     Active Substance: PROPOFOL
     Dosage: 962 MG, UNK
  2. VITAMIN D [Concomitant]
     Active Substance: CHOLECALCIFEROL
     Dosage: UNK
  3. METHOTREXATE [Concomitant]
     Active Substance: METHOTREXATE
     Dosage: UNK
  4. SERTRALINE [Concomitant]
     Active Substance: SERTRALINE HYDROCHLORIDE
     Dosage: 25 MG, DAILY
  5. ACETAMINOPHEN. [Concomitant]
     Active Substance: ACETAMINOPHEN
     Dosage: UNK
  6. FENTANYL. [Concomitant]
     Active Substance: FENTANYL
     Indication: ANAESTHESIA
     Dosage: 250 UG, UNK
  7. ROCURONIUM [Concomitant]
     Active Substance: ROCURONIUM BROMIDE
     Dosage: 170 MG, UNK
  8. TRAZODONE [Concomitant]
     Active Substance: TRAZODONE HYDROCHLORIDE
     Dosage: UNK
  9. ALLOPURINOL. [Concomitant]
     Active Substance: ALLOPURINOL
     Dosage: UNK
  10. FUROSEMIDE. [Concomitant]
     Active Substance: FUROSEMIDE
     Dosage: UNK
  11. PREDNISONE. [Concomitant]
     Active Substance: PREDNISONE
     Dosage: UNK
  12. SEVOFLURANE. [Concomitant]
     Active Substance: SEVOFLURANE
     Indication: ANAESTHESIA
     Dosage: 0.5-1 MAC/HR
  13. PROPOFOL. [Suspect]
     Active Substance: PROPOFOL
     Indication: ANAESTHESIA
     Dosage: 100 MG, UNK
  14. LEVOTHYROXINE. [Concomitant]
     Active Substance: LEVOTHYROXINE
     Dosage: UNK
  15. CANRENONE [Concomitant]
     Active Substance: CANRENONE
     Dosage: UNK
  16. ROCURONIUM [Concomitant]
     Active Substance: ROCURONIUM BROMIDE
     Indication: ANAESTHESIA
     Dosage: 50 MG, UNK
  17. FOLINA [Concomitant]
     Active Substance: FOLIC ACID
  18. AMISULPRIDE [Concomitant]
     Active Substance: AMISULPRIDE
     Dosage: UNK
  19. LANSOPRAZOLE. [Concomitant]
     Active Substance: LANSOPRAZOLE
     Dosage: UNK
  20. GABAPENTIN. [Concomitant]
     Active Substance: GABAPENTIN
     Dosage: UNK
  21. NITROGLYCERIN. [Concomitant]
     Active Substance: NITROGLYCERIN
     Dosage: UNK
  22. FENTANYL. [Concomitant]
     Active Substance: FENTANYL
     Dosage: 750 UG, UNK
  23. SIMVASTATIN. [Concomitant]
     Active Substance: SIMVASTATIN
     Dosage: UNK

REACTIONS (1)
  - Vasoplegia syndrome [Unknown]
